FAERS Safety Report 18895267 (Version 10)
Quarter: 2024Q4

REPORT INFORMATION
  Report Type: Report from Study
  Country: US (occurrence: US)
  Receive Date: 20210215
  Receipt Date: 20241022
  Transmission Date: 20250114
  Serious: Yes (Hospitalization, Other)
  Sender: TAKEDA
  Company Number: US-TAKEDA-US202014206

PATIENT
  Age: 75 Year
  Sex: Female

DRUGS (2)
  1. HUMAN IMMUNOGLOBULIN G [Suspect]
     Active Substance: HUMAN IMMUNOGLOBULIN G
     Indication: Selective IgG subclass deficiency
     Dosage: UNK UNK, MONTHLY
     Route: 042
  2. HUMAN IMMUNOGLOBULIN G [Suspect]
     Active Substance: HUMAN IMMUNOGLOBULIN G
     Indication: Primary immunodeficiency syndrome

REACTIONS (21)
  - Mental disorder [Unknown]
  - Fall [Unknown]
  - Ankle fracture [Unknown]
  - Muscle strain [Unknown]
  - Brain neoplasm [Unknown]
  - Breast cancer recurrent [Unknown]
  - Metastatic lymphoma [Unknown]
  - Ligament injury [Unknown]
  - Wrist fracture [Unknown]
  - Vertigo [Unknown]
  - Contusion [Unknown]
  - Lymphoedema [Unknown]
  - Infusion related reaction [Unknown]
  - Inappropriate schedule of product administration [Unknown]
  - Chills [Unknown]
  - Influenza like illness [Unknown]
  - Arthropod bite [Unknown]
  - Arthropathy [Unknown]
  - Epistaxis [Unknown]
  - Pain [Unknown]
  - Fatigue [Unknown]

NARRATIVE: CASE EVENT DATE: 20240630
